FAERS Safety Report 12742756 (Version 3)
Quarter: 2016Q4

REPORT INFORMATION
  Report Type: Spontaneous
  Country: US (occurrence: US)
  Receive Date: 20160914
  Receipt Date: 20161014
  Transmission Date: 20170207
  Serious: No
  Sender: FDA-Public Use
  Company Number: US-PFIZER INC-2016423715

PATIENT
  Age: 65 Year
  Sex: Female

DRUGS (2)
  1. PREDNISONE. [Suspect]
     Active Substance: PREDNISONE
     Dosage: UNK
  2. SOLU-MEDROL [Suspect]
     Active Substance: METHYLPREDNISOLONE SODIUM SUCCINATE
     Indication: MULTIPLE SCLEROSIS RELAPSE
     Dosage: UNK
     Route: 042

REACTIONS (1)
  - Drug intolerance [Unknown]
